FAERS Safety Report 11301608 (Version 1)
Quarter: 2015Q3

REPORT INFORMATION
  Report Type: Spontaneous
  Country: US (occurrence: US)
  Receive Date: 20150722
  Receipt Date: 20150722
  Transmission Date: 20151125
  Serious: No
  Sender: FDA-Public Use
  Company Number: US-ELI_LILLY_AND_COMPANY-US200907005906

PATIENT
  Age: 47 Year
  Sex: Female

DRUGS (4)
  1. AVANDIA [Concomitant]
     Active Substance: ROSIGLITAZONE MALEATE
     Dosage: UNK, UNKNOWN
  2. INSULIN                            /00646001/ [Concomitant]
     Active Substance: INSULIN NOS
     Dosage: UNK, UNKNOWN
     Dates: start: 2009
  3. HUMATROPE [Suspect]
     Active Substance: SOMATROPIN
     Dosage: 0.6 MG, UNKNOWN
     Dates: start: 2005
  4. GLUCOPHAGE [Concomitant]
     Active Substance: METFORMIN HYDROCHLORIDE
     Dosage: UNK, UNKNOWN

REACTIONS (14)
  - Malaise [Unknown]
  - Oropharyngeal pain [Unknown]
  - Dehydration [Unknown]
  - Incorrect dose administered [Unknown]
  - Hernia [Recovering/Resolving]
  - Lung disorder [Not Recovered/Not Resolved]
  - Weight decreased [Recovering/Resolving]
  - Procedural pain [Unknown]
  - Adrenal disorder [Not Recovered/Not Resolved]
  - Diarrhoea [Not Recovered/Not Resolved]
  - Fibromyalgia [Unknown]
  - Hypersensitivity [Unknown]
  - Intentional device misuse [Unknown]
  - Surgery [Unknown]

NARRATIVE: CASE EVENT DATE: 2005
